FAERS Safety Report 8039316-9 (Version None)
Quarter: 2012Q1

REPORT INFORMATION
  Report Type: 
  Country: None (occurrence: None)
  Receive Date: 20120111
  Receipt Date: 20111216
  Transmission Date: 20120608
  Serious: No
  Sender: FDA-Public Use
  Company Number: US-AMGEN-USASP2011067356

PATIENT
  Age: 70 Year
  Sex: Female

DRUGS (2)
  1. ENBREL [Suspect]
     Indication: PSORIATIC ARTHROPATHY
     Dosage: 50 MG, QWK
     Dates: start: 20060101
  2. ENBREL [Suspect]
     Indication: PSORIASIS

REACTIONS (14)
  - ALOPECIA [None]
  - ENDODONTIC PROCEDURE [None]
  - WHITE BLOOD CELL COUNT INCREASED [None]
  - DRY SKIN [None]
  - SKIN LESION [None]
  - DENTAL CARIES [None]
  - OEDEMA PERIPHERAL [None]
  - WEIGHT INCREASED [None]
  - FATIGUE [None]
  - PAIN IN EXTREMITY [None]
  - SCIATICA [None]
  - PSORIASIS [None]
  - INJECTION SITE PAIN [None]
  - JOINT SWELLING [None]
